FAERS Safety Report 5897473-4 (Version None)
Quarter: 2008Q3

REPORT INFORMATION
  Report Type: 
  Country: None (occurrence: None)
  Receive Date: 20080925
  Receipt Date: 20080916
  Transmission Date: 20090109
  Serious: Yes (Other)
  Sender: FDA-Public Use
  Company Number: CA-JNJFOC-20080606190

PATIENT
  Sex: Female
  Weight: 59 kg

DRUGS (4)
  1. REMICADE [Suspect]
     Indication: RHEUMATOID ARTHRITIS
     Route: 042
  2. REMICADE [Suspect]
     Indication: CROHN'S DISEASE
     Dosage: 26 INFUSIONS
     Route: 042
  3. PENICILLIN [Suspect]
     Indication: DRUG USE FOR UNKNOWN INDICATION
  4. METHOTREXATE [Concomitant]
     Indication: CROHN'S DISEASE
     Route: 058

REACTIONS (4)
  - CHOLELITHIASIS [None]
  - DRUG HYPERSENSITIVITY [None]
  - INTESTINAL ULCER [None]
  - RASH [None]
